FAERS Safety Report 8326584-9 (Version None)
Quarter: 2012Q2

REPORT INFORMATION
  Report Type: 
  Country: None (occurrence: None)
  Receive Date: 20120501
  Receipt Date: 20120423
  Transmission Date: 20120825
  Serious: Yes (Other)
  Sender: FDA-Public Use
  Company Number: US-PFIZER INC-2012100497

PATIENT
  Sex: Female
  Weight: 63.492 kg

DRUGS (2)
  1. EFFEXOR XR [Suspect]
     Indication: DEPRESSION
     Dosage: UNK, 1X/DAY
     Route: 048
     Dates: start: 20090701, end: 20091201
  2. FENTANYL [Concomitant]
     Indication: BACK DISORDER
     Dosage: UNK

REACTIONS (4)
  - DEPRESSION [None]
  - CRYING [None]
  - UTERINE CANCER [None]
  - DRUG INEFFECTIVE [None]
